FAERS Safety Report 6083477-8 (Version None)
Quarter: 2009Q1

REPORT INFORMATION
  Report Type: 
  Country: None (occurrence: None)
  Receive Date: 20090213
  Receipt Date: 20090213
  Transmission Date: 20090719
  Serious: Yes (Hospitalization)
  Sender: FDA-Public Use
  Company Number: None

PATIENT
  Age: 51 Year
  Sex: Male
  Weight: 104 kg

DRUGS (3)
  1. OXALIPLATIN [Suspect]
     Indication: COLORECTAL CANCER
     Dosage: 85MG/M2 Q 14 DAYS IV
     Route: 042
     Dates: start: 20081125, end: 20090106
  2. CAPECITABINE [Suspect]
     Indication: COLORECTAL CANCER
     Dosage: 750 MG/M2 BID Q DAY PO
     Route: 048
     Dates: start: 20081125, end: 20090114
  3. BEVACIZUMAB [Suspect]
     Indication: COLORECTAL CANCER
     Dosage: 5MG/M2 Q 14 DAYS IV
     Route: 042
     Dates: start: 20081125, end: 20090106

REACTIONS (3)
  - BLOOD POTASSIUM DECREASED [None]
  - COLONIC OBSTRUCTION [None]
  - DIARRHOEA [None]
